FAERS Safety Report 6600224-9 (Version None)
Quarter: 2010Q1

REPORT INFORMATION
  Report Type: 
  Country: None (occurrence: None)
  Receive Date: 20100224
  Receipt Date: 20100218
  Transmission Date: 20100710
  Serious: Yes (Hospitalization)
  Sender: FDA-Public Use
  Company Number: DE-WYE-G05589010

PATIENT
  Age: 76 Year
  Sex: Female

DRUGS (11)
  1. TREVILOR [Interacting]
     Route: 048
     Dates: start: 20090818, end: 20090823
  2. TREVILOR [Interacting]
     Route: 048
     Dates: start: 20090824
  3. MELPERONE [Suspect]
     Route: 048
     Dates: start: 20090821, end: 20090823
  4. MELPERONE [Suspect]
     Route: 048
     Dates: start: 20090824
  5. HYDROCHLOROTHIAZIDE [Suspect]
     Route: 048
     Dates: end: 20090815
  6. BISOPROLOL [Concomitant]
     Route: 048
     Dates: end: 20090815
  7. BISOPROLOL [Concomitant]
     Route: 048
     Dates: start: 20090816
  8. ACETYLSALICYLIC ACID [Concomitant]
     Route: 048
  9. ARICEPT [Concomitant]
     Route: 048
     Dates: start: 20090804, end: 20090813
  10. ARICEPT [Concomitant]
     Route: 048
     Dates: start: 20090814
  11. RAMIPRIL [Interacting]
     Dosage: 10 MG ONCE DAILY FROM UNKNOWN DATE TO 15-AUG-2009; SINCE 17-AUG-2009 DAILY DOSE DECREASED TO 2.5 MG
     Route: 048

REACTIONS (3)
  - DRUG INTERACTION [None]
  - HYPOKALAEMIA [None]
  - HYPONATRAEMIA [None]
